FAERS Safety Report 10775594 (Version 1)
Quarter: 2015Q1

REPORT INFORMATION
  Report Type: Spontaneous
  Country: BR (occurrence: BR)
  Receive Date: 20150209
  Receipt Date: 20150209
  Transmission Date: 20150721
  Serious: Yes (Death)
  Sender: FDA-Public Use
  Company Number: BR-SA-2015SA015289

PATIENT
  Sex: Female

DRUGS (2)
  1. LANTUS [Suspect]
     Active Substance: INSULIN GLARGINE
     Indication: DIABETES MELLITUS
     Route: 065
  2. AUTOPEN 24 [Concomitant]
     Active Substance: DEVICE
     Indication: DEVICE THERAPY

REACTIONS (1)
  - Lung disorder [Fatal]
